FAERS Safety Report 21411497 (Version 1)
Quarter: 2022Q4

REPORT INFORMATION
  Report Type: Spontaneous
  Country: DE (occurrence: DE)
  Receive Date: 20221005
  Receipt Date: 20221005
  Transmission Date: 20230112
  Serious: Yes (Hospitalization, Other)
  Sender: FDA-Public Use
  Company Number: DE-ANIPHARMA-2022-DE-000177

PATIENT
  Age: 85 Year
  Sex: Female

DRUGS (6)
  1. CANDESARTAN [Suspect]
     Active Substance: CANDESARTAN
     Indication: Product used for unknown indication
     Dosage: 16 MG DAILY
     Route: 048
  2. PHENPROCOUMON [Suspect]
     Active Substance: PHENPROCOUMON
     Dosage: 3MG, NORMALLY A QUARTER TABLET SOLID BUT PAUSED SINCE FOURTH OF JULY
     Route: 048
  3. AMIODARONE [Concomitant]
     Active Substance: AMIODARONE
     Dosage: 200 MG DAILY
     Route: 048
  4. METOPROLOL [Concomitant]
     Active Substance: METOPROLOL
     Dosage: 47.5 MG, 1-0-1-0
     Route: 048
  5. SPIRONOLACTONE [Suspect]
     Active Substance: SPIRONOLACTONE
     Dosage: 50 MG, 0.5-0-0-0
     Route: 048
  6. TORSEMIDE [Suspect]
     Active Substance: TORSEMIDE
     Dosage: 50 MG DAILY
     Route: 048

REACTIONS (7)
  - Coccydynia [Recovering/Resolving]
  - Anal haemorrhage [Recovering/Resolving]
  - Acute kidney injury [Recovering/Resolving]
  - Blood creatinine increased [Recovering/Resolving]
  - Haematochezia [Recovering/Resolving]
  - Colitis [Recovering/Resolving]
  - Large intestine polyp [Recovering/Resolving]
